FAERS Safety Report 5152730-4 (Version None)
Quarter: 2006Q4

REPORT INFORMATION
  Report Type: 
  Country: None (occurrence: None)
  Receive Date: 20061116
  Receipt Date: 20061010
  Transmission Date: 20070319
  Serious: Yes (Hospitalization)
  Sender: FDA-Public Use
  Company Number: GB-ABBOTT-06P-167-0346767-00

PATIENT
  Sex: Female
  Weight: 64 kg

DRUGS (3)
  1. DEPAKOTE [Suspect]
     Indication: MIGRAINE
     Route: 048
     Dates: start: 20040101, end: 20061009
  2. DEXAMETHASONE TAB [Concomitant]
     Indication: POSTOPERATIVE CARE
     Route: 048
     Dates: start: 20060601, end: 20060801
  3. HYDROCODONE [Concomitant]
     Indication: PAIN MANAGEMENT
     Route: 048
     Dates: start: 20060601, end: 20060901

REACTIONS (3)
  - COAGULATION TIME PROLONGED [None]
  - HEPATIC FUNCTION ABNORMAL [None]
  - INTERVERTEBRAL DISC PROTRUSION [None]
